FAERS Safety Report 11235257 (Version 2)
Quarter: 2015Q4

REPORT INFORMATION
  Report Type: Spontaneous
  Country: US (occurrence: US)
  Receive Date: 20150702
  Receipt Date: 20151016
  Transmission Date: 20160304
  Serious: Yes (Hospitalization)
  Sender: FDA-Public Use
  Company Number: US-BRACCO-012330

PATIENT
  Age: 65 Year
  Sex: Female

DRUGS (5)
  1. MULTIHANCE [Suspect]
     Active Substance: GADOBENATE DIMEGLUMINE
     Indication: NUCLEAR MAGNETIC RESONANCE IMAGING
     Route: 042
     Dates: start: 20150604, end: 20150604
  2. ZESTRIL [Concomitant]
     Active Substance: LISINOPRIL
  3. ALDACTONE [Concomitant]
     Active Substance: SPIRONOLACTONE
  4. COREG [Concomitant]
     Active Substance: CARVEDILOL
  5. LEVOTHYROXINE. [Concomitant]
     Active Substance: LEVOTHYROXINE

REACTIONS (1)
  - Cardiac arrest [Recovered/Resolved]

NARRATIVE: CASE EVENT DATE: 20150604
